FAERS Safety Report 6019933-8 (Version None)
Quarter: 2008Q4

REPORT INFORMATION
  Report Type: 
  Country: None (occurrence: None)
  Receive Date: 20081224
  Receipt Date: 20081212
  Transmission Date: 20090506
  Serious: Yes (Hospitalization)
  Sender: FDA-Public Use
  Company Number: 2008SP017967

PATIENT
  Age: 46 Year
  Sex: Male
  Weight: 84 kg

DRUGS (10)
  1. TEMOZOLOMIDE [Suspect]
     Indication: GLIOBLASTOMA MULTIFORME
     Dosage: 75 MG/M2;QD;PO;QD
     Route: 048
     Dates: start: 20080815, end: 20080828
  2. TEMOZOLOMIDE [Suspect]
     Indication: GLIOBLASTOMA MULTIFORME
     Dosage: 75 MG/M2;QD;PO;QD
     Route: 048
     Dates: start: 20071224
  3. TEMOZOLOMIDE [Suspect]
  4. TEMOZOLOMIDE [Suspect]
  5. DECADRON [Concomitant]
  6. DUONEB [Concomitant]
  7. PROTONIX /01263201/ [Concomitant]
  8. TYLENOL (CAPLET) [Concomitant]
  9. ZOSYN [Concomitant]
  10. SODIUM CHLORIDE [Concomitant]

REACTIONS (11)
  - ANOREXIA [None]
  - CARDIAC FAILURE CONGESTIVE [None]
  - CLOSTRIDIAL INFECTION [None]
  - DIABETES MELLITUS INADEQUATE CONTROL [None]
  - GENERAL PHYSICAL HEALTH DETERIORATION [None]
  - HYPOTENSION [None]
  - ORAL CANDIDIASIS [None]
  - PLEURAL EFFUSION [None]
  - PNEUMONIA [None]
  - PULMONARY OEDEMA [None]
  - WEIGHT INCREASED [None]
